FAERS Safety Report 6301802-7 (Version None)
Quarter: 2009Q3

REPORT INFORMATION
  Report Type: 
  Country: None (occurrence: None)
  Receive Date: 20090807
  Receipt Date: 20090730
  Transmission Date: 20100115
  Serious: Yes (Other)
  Sender: FDA-Public Use
  Company Number: US-AVENTIS-200916767US

PATIENT
  Sex: Female

DRUGS (13)
  1. LANTUS [Suspect]
     Dosage: DOSE: 60 UNITS
     Route: 058
     Dates: start: 20050101
  2. OPTICLIK (INSULIN INJECTION PEN) [Suspect]
     Dosage: DOSE: UNK
  3. NORVASC [Concomitant]
  4. COREG [Concomitant]
     Dosage: DOSE: 25 MG
  5. DIOVANE [Concomitant]
  6. ARAVA [Concomitant]
  7. LOVASTATIN [Concomitant]
  8. KLOR-CON [Concomitant]
  9. SPIRIVA [Concomitant]
     Dosage: DOSE: UNK
  10. ADVAIR HFA [Concomitant]
     Dosage: DOSE: UNK
  11. CLONIDINE [Concomitant]
  12. HYDROCHLOROTHIAZIDE [Concomitant]
  13. OPHTHALMOLOGICALS [Concomitant]
     Dosage: DOSE: UNK
     Route: 047

REACTIONS (1)
  - BLINDNESS [None]
